FAERS Safety Report 8581806-4 (Version None)
Quarter: 2012Q3

REPORT INFORMATION
  Report Type: 
  Country: None (occurrence: None)
  Receive Date: 20120809
  Receipt Date: 20120730
  Transmission Date: 20120928
  Serious: Yes (Hospitalization, Other)
  Sender: FDA-Public Use
  Company Number: PHHY2012JP013916

PATIENT
  Age: 31 Year
  Sex: Male
  Weight: 61 kg

DRUGS (21)
  1. SOLU-MEDROL [Concomitant]
     Indication: MULTIPLE SCLEROSIS
     Dosage: 1000 MG, UNK
     Dates: start: 20110705, end: 20120112
  2. EBRANTIL [Concomitant]
     Indication: POLLAKIURIA
     Dosage: 30 MG, UNK
     Route: 048
     Dates: start: 20111202
  3. RABEPRAZOLE SODIUM [Concomitant]
     Indication: GASTROOESOPHAGEAL REFLUX DISEASE
     Dosage: 10 MG, UNK
     Route: 048
     Dates: start: 20111125
  4. CLONAZEPAM [Concomitant]
     Indication: PAIN
     Dosage: 1 MG, UNK
     Route: 048
     Dates: start: 20110818
  5. GILENYA [Suspect]
     Indication: MULTIPLE SCLEROSIS
     Dosage: 0.5 MG, UNK
     Route: 048
     Dates: start: 20120117, end: 20120214
  6. VITAMIN B12 [Concomitant]
     Dosage: 500 MG, UNK
     Route: 048
  7. MENEST [Concomitant]
     Indication: PARKINSONISM
     Dosage: 400 MG, UNK
     Route: 048
  8. OLMESARTAN MEDOXOMIL [Concomitant]
     Indication: HYPERTENSION
     Dosage: 20 MG, UNK
     Route: 048
     Dates: start: 20110922
  9. LIPITOR [Concomitant]
     Indication: DYSLIPIDAEMIA
     Dosage: 5 MG, UNK
     Route: 048
     Dates: start: 20111220
  10. LIORESAL [Concomitant]
     Dosage: 30 MG, UNK
     Route: 048
     Dates: start: 20111220
  11. DIAZEPAM [Concomitant]
     Dosage: 2 MG, UNK
     Route: 048
     Dates: start: 20110819
  12. WARKMIN [Concomitant]
     Indication: OSTEOPOROSIS
     Dosage: 0.25 UG, UNK
     Route: 048
  13. RISUMIC [Concomitant]
     Indication: ORTHOSTATIC HYPOTENSION
     Dosage: 15 MG, UNK
     Route: 048
     Dates: start: 20111111
  14. CARBIDOPA [Concomitant]
     Dosage: 100 MG, UNK
     Route: 048
  15. REBAMIPIDE [Concomitant]
     Dosage: 200 MG, UNK
     Route: 048
  16. ASPARA-CA [Concomitant]
     Dosage: 200 MG, UNK
     Route: 048
  17. WARFARIN POTASSIUM [Concomitant]
     Indication: OEDEMA PERIPHERAL
     Dosage: 1 MG, UNK
     Route: 048
     Dates: start: 20111220, end: 20120224
  18. IMURAN [Concomitant]
     Indication: MULTIPLE SCLEROSIS
     Dosage: 100 MG, UNK
     Route: 048
     Dates: start: 20110706, end: 20110810
  19. ALLEGRA [Concomitant]
     Indication: DERMATITIS ATOPIC
     Dosage: 120 MG, UNK
     Route: 048
  20. MAGMITT [Concomitant]
     Dosage: 1320 MG, UNK
     Route: 048
  21. PURSENNID [Concomitant]
     Dosage: 2 DF, UNK
     Route: 048

REACTIONS (6)
  - RETINAL HAEMORRHAGE [None]
  - LYMPHOCYTE COUNT DECREASED [None]
  - MACULAR OEDEMA [None]
  - MULTIPLE SCLEROSIS RELAPSE [None]
  - VISUAL ACUITY REDUCED [None]
  - WHITE BLOOD CELL COUNT DECREASED [None]
